FAERS Safety Report 25166321 (Version 1)
Quarter: 2025Q2

REPORT INFORMATION
  Report Type: Report from Study
  Country: US (occurrence: US)
  Receive Date: 20250407
  Receipt Date: 20250407
  Transmission Date: 20250716
  Serious: Yes (Other)
  Sender: NOVARTIS
  Company Number: US-002147023-NVSC2025US056427

PATIENT
  Sex: Male
  Weight: 68.04 kg

DRUGS (1)
  1. ENTRESTO [Suspect]
     Active Substance: SACUBITRIL\VALSARTAN
     Indication: Cardiac failure
     Dosage: UNK, QD (24/26 MG)
     Route: 048

REACTIONS (11)
  - Loss of consciousness [Unknown]
  - Myocardial infarction [Unknown]
  - Renal failure [Unknown]
  - Cerebrovascular accident [Unknown]
  - Thrombosis [Unknown]
  - Prostate cancer [Unknown]
  - Hypotension [Unknown]
  - Cardiac disorder [Unknown]
  - Nasopharyngitis [Unknown]
  - Dizziness [Unknown]
  - Chills [Unknown]
